FAERS Safety Report 7360037-X (Version None)
Quarter: 2011Q1

REPORT INFORMATION
  Report Type: 
  Country: None (occurrence: None)
  Receive Date: 20110317
  Receipt Date: 20110316
  Transmission Date: 20110831
  Serious: Yes (Other)
  Sender: FDA-Public Use
  Company Number: ES-ELI_LILLY_AND_COMPANY-ES200806001078

PATIENT
  Age: 51 Year
  Sex: Female

DRUGS (2)
  1. ZYPREXA [Suspect]
     Indication: BIPOLAR DISORDER
     Dosage: 2.5 MG, UNK
     Route: 048
     Dates: start: 20060101
  2. LAMICTAL [Concomitant]
     Indication: BIPOLAR DISORDER
     Dosage: 25 MG, UNK
     Dates: start: 20070101

REACTIONS (2)
  - AKATHISIA [None]
  - DISTURBANCE IN ATTENTION [None]
